FAERS Safety Report 11231498 (Version 2)
Quarter: 2015Q3

REPORT INFORMATION
  Report Type: Spontaneous
  Country: US (occurrence: US)
  Receive Date: 20150701
  Receipt Date: 20150813
  Transmission Date: 20151125
  Serious: Yes (Hospitalization, Other)
  Sender: FDA-Public Use
  Company Number: US-PFIZER INC-2015214520

PATIENT
  Age: 79 Year
  Sex: Male
  Weight: 79 kg

DRUGS (1)
  1. TIKOSYN [Suspect]
     Active Substance: DOFETILIDE
     Indication: ARRHYTHMIA
     Dosage: 2X/DAY
     Dates: start: 2013

REACTIONS (7)
  - Hernia [Unknown]
  - Hip fracture [Unknown]
  - Hip fracture [Unknown]
  - Testicular swelling [Not Recovered/Not Resolved]
  - Weight increased [Recovered/Resolved]
  - Prostatic disorder [Unknown]
  - Urinary tract infection [Unknown]

NARRATIVE: CASE EVENT DATE: 201307
